FAERS Safety Report 5570926-4 (Version None)
Quarter: 2007Q4

REPORT INFORMATION
  Report Type: 
  Country: None (occurrence: None)
  Receive Date: 20071221
  Receipt Date: 20071216
  Transmission Date: 20080405
  Serious: Yes (Other)
  Sender: FDA-Public Use
  Company Number: BR-JNJFOC-20071204708

PATIENT
  Age: 12 Month
  Sex: Female
  Weight: 10 kg

DRUGS (2)
  1. TYLENOL (CAPLET) [Suspect]
  2. TYLENOL (CAPLET) [Suspect]
     Indication: DRUG USE FOR UNKNOWN INDICATION
     Dosage: UNKNOWN

REACTIONS (4)
  - HEPATOMEGALY [None]
  - INCORRECT DOSE ADMINISTERED [None]
  - SPLENOMEGALY [None]
  - YELLOW SKIN [None]
